FAERS Safety Report 4763359-1 (Version None)
Quarter: 2005Q3

REPORT INFORMATION
  Report Type: 
  Country: None (occurrence: None)
  Receive Date: 20050908
  Receipt Date: 20050829
  Transmission Date: 20060218
  Serious: Yes (Death)
  Sender: FDA-Public Use
  Company Number: CN-ABBOTT-05P-035-0310043-00

PATIENT
  Age: 32 Year
  Sex: Male

DRUGS (4)
  1. CYCLOSPORINE [Suspect]
     Indication: IMMUNOSUPPRESSANT DRUG THERAPY
     Dosage: 5 MG/KG/DAY, FOR SEVEN DAYS
  2. HORSE ANTILYMPHOCYTE GLOBULIN [Suspect]
     Indication: IMMUNOSUPPRESSANT DRUG THERAPY
     Dosage: ON DAYS ONE, TWO, THREE, FOUR, AND FIVE
  3. 6-METHYLPREDNISOLONE [Suspect]
     Indication: IMMUNOSUPPRESSANT DRUG THERAPY
     Dosage: 2 MG/KG/DAY, GIVEN FOR FIVE DAYS
  4. 6-METHYLPREDNISOLONE [Suspect]
     Dosage: DOSE TAPERED UNTIL DAY 30

REACTIONS (4)
  - DYSPNOEA EXACERBATED [None]
  - LUNG INFECTION [None]
  - PYREXIA [None]
  - RESPIRATORY FAILURE [None]
